FAERS Safety Report 4775061-0 (Version None)
Quarter: 2005Q3

REPORT INFORMATION
  Report Type: 
  Country: None (occurrence: None)
  Receive Date: 20050920
  Receipt Date: 20050907
  Transmission Date: 20060218
  Serious: Yes (Death)
  Sender: FDA-Public Use
  Company Number: 2005125391

PATIENT
  Age: 71 Year
  Sex: Male

DRUGS (5)
  1. VIAGRA [Suspect]
     Indication: ERECTILE DYSFUNCTION
     Dosage: (25 MG, AS NECESSARY), ORAL
     Route: 048
     Dates: start: 20050721, end: 20050721
  2. CARBASALATE CALCIUM (CARBASALATE CALCIUM) [Concomitant]
  3. FUROSEMIDE [Concomitant]
  4. FOSINOPRIL SODIUM [Concomitant]
  5. METOPROLOL TARTRATE [Concomitant]

REACTIONS (2)
  - CIRCULATORY COLLAPSE [None]
  - VENTRICULAR FIBRILLATION [None]
